FAERS Safety Report 6847597-X (Version None)
Quarter: 2010Q3

REPORT INFORMATION
  Report Type: 
  Country: None (occurrence: None)
  Receive Date: 20100716
  Receipt Date: 20100703
  Transmission Date: 20110219
  Serious: Yes (Other)
  Sender: FDA-Public Use
  Company Number: US-PFIZER INC-2010083327

PATIENT
  Sex: Male

DRUGS (9)
  1. CHANTIX [Suspect]
     Indication: SMOKING CESSATION THERAPY
     Dosage: UNK
     Route: 048
     Dates: start: 20100428
  2. VIAGRA [Suspect]
     Indication: LIBIDO DECREASED
     Dosage: UNK
     Route: 048
     Dates: start: 20090101, end: 20090101
  3. CIALIS [Suspect]
     Indication: LIBIDO DECREASED
     Dosage: UNK
     Route: 048
     Dates: start: 20090101, end: 20090101
  4. LASIX [Concomitant]
     Indication: DIURETIC THERAPY
     Dosage: 40 MG, 1X/DAY
     Route: 048
     Dates: start: 20100401
  5. SPIRONOLACTONE [Concomitant]
     Indication: DIURETIC THERAPY
     Dosage: 50 MG, 1X/DAY
     Route: 048
     Dates: start: 20100401, end: 20100401
  6. GLIMEPIRIDE [Concomitant]
     Indication: DIABETES MELLITUS
     Dosage: 4 MG, UNK
     Route: 048
  7. LANTUS [Concomitant]
     Indication: DIABETES MELLITUS
     Dosage: 40 IU, UNK
     Route: 058
     Dates: end: 20100101
  8. TRAZODONE HYDROCHLORIDE [Concomitant]
     Indication: SLEEP DISORDER
     Dosage: UNK
     Route: 048
  9. TYLENOL [Concomitant]
     Indication: SLEEP DISORDER
     Dosage: UNK
     Route: 048

REACTIONS (10)
  - CELLULITIS [None]
  - CHOKING [None]
  - DECREASED APPETITE [None]
  - DRUG INEFFECTIVE [None]
  - NEOPLASM [None]
  - PARAESTHESIA [None]
  - PNEUMONIA [None]
  - RESPIRATORY ARREST [None]
  - SLEEP DISORDER [None]
  - WEIGHT DECREASED [None]
